FAERS Safety Report 11796292 (Version 5)
Quarter: 2015Q4

REPORT INFORMATION
  Report Type: Spontaneous
  Country: US (occurrence: US)
  Receive Date: 20151203
  Receipt Date: 20151228
  Transmission Date: 20160305
  Serious: Yes (Other)
  Sender: FDA-Public Use
  Company Number: US-DRREDDYS-USA/USA/15/0054316

PATIENT
  Sex: Female

DRUGS (3)
  1. HABITROL [Suspect]
     Active Substance: NICOTINE
     Indication: SMOKING CESSATION THERAPY
     Route: 061
  2. HABITROL [Suspect]
     Active Substance: NICOTINE
     Route: 065
     Dates: start: 20151123
  3. NICOTINE. [Suspect]
     Active Substance: NICOTINE
     Indication: SMOKING CESSATION THERAPY
     Route: 048

REACTIONS (10)
  - Nicotine dependence [Unknown]
  - Overdose [Unknown]
  - Anxiety [Unknown]
  - Product adhesion issue [Unknown]
  - Affective disorder [Unknown]
  - Irritability [Unknown]
  - Abnormal dreams [Unknown]
  - Headache [Unknown]
  - Depressed level of consciousness [Unknown]
  - Drug dose omission [Unknown]

NARRATIVE: CASE EVENT DATE: 20151124
